FAERS Safety Report 11200362 (Version 1)
Quarter: 2015Q2

REPORT INFORMATION
  Report Type: Spontaneous
  Country: US (occurrence: US)
  Receive Date: 20150618
  Receipt Date: 20150618
  Transmission Date: 20150821
  Serious: No
  Sender: FDA-Public Use
  Company Number: US-ALLERGAN-1419447US

PATIENT
  Age: 66 Year
  Sex: Female

DRUGS (7)
  1. CLARITIN-D 12 HOUR [Concomitant]
     Active Substance: LORATADINE\PSEUDOEPHEDRINE SULFATE
  2. AZITHROMYCIN [Suspect]
     Active Substance: AZITHROMYCIN ANHYDROUS
     Indication: GINGIVITIS
  3. TOPROL XL [Concomitant]
     Active Substance: METOPROLOL SUCCINATE
     Indication: BLOOD PRESSURE
  4. LUMIGAN [Concomitant]
     Active Substance: BIMATOPROST
     Indication: GLAUCOMA
  5. ZYMAXID [Suspect]
     Active Substance: GATIFLOXACIN
     Indication: PREOPERATIVE CARE
     Dosage: 1 GTT, SINGLE
     Route: 047
     Dates: start: 20140907, end: 20140907
  6. BENZONATATE. [Concomitant]
     Active Substance: BENZONATATE
  7. PREVACID [Concomitant]
     Active Substance: LANSOPRAZOLE

REACTIONS (4)
  - Dyspnoea [Recovered/Resolved]
  - Chest discomfort [Recovered/Resolved]
  - Dry throat [Recovered/Resolved]
  - Pruritus [Recovered/Resolved]

NARRATIVE: CASE EVENT DATE: 20140907
